FAERS Safety Report 8541059-X (Version None)
Quarter: 2012Q3

REPORT INFORMATION
  Report Type: 
  Country: None (occurrence: None)
  Receive Date: 20120726
  Receipt Date: 20110817
  Transmission Date: 20120928
  Serious: No
  Sender: FDA-Public Use
  Company Number: US-ASTRAZENECA-2011SE49338

PATIENT
  Age: 51 Year
  Sex: Male
  Weight: 93 kg

DRUGS (4)
  1. SEROQUEL [Suspect]
     Indication: BIPOLAR DISORDER
     Route: 048
     Dates: start: 20090101
  2. MORPHINE SULFATE [Concomitant]
     Indication: BACK PAIN
  3. OXYCODONE HCL [Concomitant]
     Indication: BACK PAIN
  4. OMEPRAZOLE [Concomitant]
     Indication: GASTRIC ULCER

REACTIONS (2)
  - INCORRECT DOSE ADMINISTERED [None]
  - INSOMNIA [None]
